FAERS Safety Report 7124821-X (Version None)
Quarter: 2010Q4

REPORT INFORMATION
  Report Type: 
  Country: None (occurrence: None)
  Receive Date: 20101112
  Receipt Date: 20101028
  Transmission Date: 20110411
  Serious: Yes (Death, Hospitalization)
  Sender: FDA-Public Use
  Company Number: 1000017113

PATIENT
  Age: 81 Year
  Sex: Female

DRUGS (3)
  1. MEMANTINE HCL [Suspect]
     Indication: DEMENTIA ALZHEIMER'S TYPE
     Dosage: 20 MG (20 MG, 1 IN 1 D), ORAL
     Route: 048
     Dates: start: 20050519, end: 20101027
  2. PRAVASTATIN SODIUM [Concomitant]
  3. RINDERON VG (GENTAMICIN SULFATE, BETAMETHASONE VALERATE) (GENTAMICIN S [Concomitant]

REACTIONS (10)
  - ACUTE CORONARY SYNDROME [None]
  - BLOOD PRESSURE DECREASED [None]
  - BLOOD PRESSURE IMMEASURABLE [None]
  - CARDIO-RESPIRATORY ARREST [None]
  - FALL [None]
  - FEELING COLD [None]
  - LOSS OF CONSCIOUSNESS [None]
  - MYOCARDIAL ISCHAEMIA [None]
  - OXYGEN SATURATION IMMEASURABLE [None]
  - YAWNING [None]
